FAERS Safety Report 14879274 (Version 13)
Quarter: 2018Q3

REPORT INFORMATION
  Report Type: Report from Study
  Country: CA (occurrence: CA)
  Receive Date: 20180511
  Receipt Date: 20180926
  Transmission Date: 20181010
  Serious: Yes (Other)
  Sender: FDA-Public Use
  Company Number: CA-ROCHE-2020907

PATIENT
  Age: 27 Year
  Sex: Female
  Weight: 63.5 kg

DRUGS (16)
  1. ACTEMRA [Suspect]
     Active Substance: TOCILIZUMAB
     Dosage: INFUSION 26
     Route: 042
     Dates: start: 20180522
  2. ACTEMRA [Suspect]
     Active Substance: TOCILIZUMAB
     Route: 042
     Dates: start: 2018
  3. ACTEMRA [Suspect]
     Active Substance: TOCILIZUMAB
     Dosage: INFUSION NUMBER 7
     Route: 042
     Dates: start: 20170807
  4. ACTEMRA [Suspect]
     Active Substance: TOCILIZUMAB
     Dosage: INFUSION #17
     Route: 042
     Dates: start: 20180115
  5. ACTEMRA [Suspect]
     Active Substance: TOCILIZUMAB
     Dosage: INFUSION #24
     Route: 042
     Dates: start: 20180423
  6. ACTEMRA [Suspect]
     Active Substance: TOCILIZUMAB
     Dosage: INFUSION NUMBER 14
     Route: 042
     Dates: start: 20171030
  7. NUVARING [Concomitant]
     Active Substance: ETHINYL ESTRADIOL\ETONOGESTREL
  8. ACTEMRA [Suspect]
     Active Substance: TOCILIZUMAB
     Dosage: INFUSION NUMBER 14
     Route: 042
     Dates: start: 20171113
  9. INDOCID [Concomitant]
     Active Substance: INDOMETHACIN
  10. COLACE [Concomitant]
     Active Substance: DOCUSATE SODIUM
  11. PREVACID [Concomitant]
     Active Substance: LANSOPRAZOLE
  12. FLEXERIL [Concomitant]
     Active Substance: CYCLOBENZAPRINE HYDROCHLORIDE
     Route: 065
  13. ACTEMRA [Suspect]
     Active Substance: TOCILIZUMAB
     Dosage: INFUSION NUMBER 02
     Route: 042
     Dates: start: 20170529
  14. ACTEMRA [Suspect]
     Active Substance: TOCILIZUMAB
     Dosage: INFUSION #23
     Route: 042
     Dates: start: 20180410
  15. ACTEMRA [Suspect]
     Active Substance: TOCILIZUMAB
     Indication: STILL^S DISEASE
     Route: 042
     Dates: start: 20170515
  16. PREDNISON [Concomitant]
     Active Substance: PREDNISONE
     Route: 065

REACTIONS (26)
  - Investigation abnormal [Not Recovered/Not Resolved]
  - Headache [Unknown]
  - Vomiting [Unknown]
  - Arthropathy [Unknown]
  - Sinusitis [Not Recovered/Not Resolved]
  - Pyrexia [Unknown]
  - Diarrhoea [Unknown]
  - Pharyngitis [Not Recovered/Not Resolved]
  - Arthralgia [Unknown]
  - Pelvic pain [Recovered/Resolved]
  - Back pain [Not Recovered/Not Resolved]
  - Productive cough [Not Recovered/Not Resolved]
  - Respiratory tract infection [Not Recovered/Not Resolved]
  - Erythema [Not Recovered/Not Resolved]
  - Fatigue [Recovered/Resolved]
  - Heart rate increased [Unknown]
  - Hypotension [Unknown]
  - Oropharyngeal pain [Not Recovered/Not Resolved]
  - Nasopharyngitis [Recovered/Resolved]
  - Gastroenteritis [Recovered/Resolved]
  - Bronchitis [Recovered/Resolved]
  - Weight decreased [Unknown]
  - Infusion related reaction [Recovering/Resolving]
  - Bursitis [Unknown]
  - Abdominal pain [Recovered/Resolved]
  - Nausea [Recovered/Resolved]

NARRATIVE: CASE EVENT DATE: 20171223
